FAERS Safety Report 13131474 (Version 1)
Quarter: 2017Q1

REPORT INFORMATION
  Report Type: Spontaneous
  Country: JP (occurrence: JP)
  Receive Date: 20170119
  Receipt Date: 20170119
  Transmission Date: 20170428
  Serious: Yes (Hospitalization)
  Sender: FDA-Public Use
  Company Number: JP-BAYER-2017-006533

PATIENT
  Sex: Female

DRUGS (2)
  1. YAZ [Suspect]
     Active Substance: DROSPIRENONE\ETHINYL ESTRADIOL
     Indication: OVARIAN ENLARGEMENT
     Dosage: UNK
     Route: 048
     Dates: start: 20161218
  2. YAZ [Suspect]
     Active Substance: DROSPIRENONE\ETHINYL ESTRADIOL
     Indication: FALLOPIAN TUBE ENLARGEMENT

REACTIONS (3)
  - Menorrhagia [None]
  - Off label use [None]
  - Hospitalisation [None]
